FAERS Safety Report 5528737-1 (Version None)
Quarter: 2007Q4

REPORT INFORMATION
  Report Type: 
  Country: None (occurrence: None)
  Receive Date: 20071113
  Receipt Date: 20070629
  Transmission Date: 20080405
  Serious: Yes (Hospitalization)
  Sender: FDA-Public Use
  Company Number: 2007-160783-NL

PATIENT
  Age: 28 Year
  Sex: Female
  Weight: 61 kg

DRUGS (3)
  1. PUREGON [Suspect]
     Indication: INFERTILITY MALE
     Dosage: 150 IU QD SUBCUTANEOUS
     Route: 058
     Dates: start: 20070106, end: 20070108
  2. PUREGON [Suspect]
     Indication: INFERTILITY MALE
     Dosage: 75 IU QD SUBCUTANEOUS
     Route: 058
     Dates: start: 20070109, end: 20070114
  3. CHORIONIC GONADOTROPIN [Suspect]
     Indication: INFERTILITY MALE
     Dosage: 10000 IU ONCE SUBCUTANEOUS
     Route: 058
     Dates: start: 20070115, end: 20070115

REACTIONS (1)
  - OVARIAN HYPERSTIMULATION SYNDROME [None]
